FAERS Safety Report 7631867-1 (Version None)
Quarter: 2011Q3

REPORT INFORMATION
  Report Type: 
  Country: None (occurrence: None)
  Receive Date: 20110725
  Receipt Date: 20110421
  Transmission Date: 20111222
  Serious: No
  Sender: FDA-Public Use
  Company Number: US-BRISTOL-MYERS SQUIBB COMPANY-15689557

PATIENT
  Age: 86 Year
  Sex: Female

DRUGS (1)
  1. WARFARIN SODIUM [Suspect]
     Dates: start: 20100701

REACTIONS (1)
  - URINARY TRACT INFECTION [None]
